FAERS Safety Report 9866904 (Version 1)
Quarter: 2014Q1

REPORT INFORMATION
  Report Type: Spontaneous
  Country: US (occurrence: None)
  Receive Date: 20140131
  Receipt Date: 20140131
  Transmission Date: 20141002
  Serious: Yes (Other)
  Sender: FDA-Public Use
  Company Number: NSR_01512_2014

PATIENT
  Age: 50 Year
  Sex: Female
  Weight: 102 kg

DRUGS (13)
  1. METOCLOPRAMIDE [Suspect]
     Indication: HEADACHE
     Dosage: SLOW IVP OVER 3 TO 5 MINUTES INTRAVENOUS (NOT OTHERWISE SPECIFIED)
     Route: 042
  2. METOCLOPRAMIDE [Suspect]
     Indication: MIGRAINE
     Dosage: SLOW IVP OVER 3 TO 5 MINUTES INTRAVENOUS (NOT OTHERWISE SPECIFIED)
     Route: 042
  3. DIPHENHYDRAMINE [Suspect]
     Indication: HEADACHE
     Dosage: SLOW IVP OVER 3 TO 5 MINUTES  INTRAVENOUS (NOT OTHERWISE SPECIFIED) )
  4. DIPHENHYDRAMINE [Suspect]
     Indication: MIGRAINE
     Dosage: SLOW IVP OVER 3 TO 5 MINUTES  INTRAVENOUS (NOT OTHERWISE SPECIFIED) )
  5. BENAZEPRIL [Concomitant]
  6. CALCIUM + VITAMIN D / 01483701 [Concomitant]
  7. CLOPIDOGREL [Concomitant]
  8. INSULIN GLARGINE [Concomitant]
  9. INSULIN LISPRO [Concomitant]
  10. LEVOTHYROXINE [Concomitant]
  11. METFORMIN [Concomitant]
  12. PAROXETINE [Concomitant]
  13. SIMVASTATIN [Concomitant]

REACTIONS (2)
  - Hypotension [None]
  - Off label use [None]
